FAERS Safety Report 9594524 (Version 1)
Quarter: 2013Q3

REPORT INFORMATION
  Report Type: Spontaneous
  Country: US (occurrence: None)
  Receive Date: 20130927
  Receipt Date: 20130927
  Transmission Date: 20140515
  Serious: Yes (Other)
  Sender: FDA-Public Use
  Company Number: CABO-13002948

PATIENT
  Age: 64 Year
  Sex: Male

DRUGS (4)
  1. COMETRIQ [Suspect]
     Indication: THYROID CANCER
     Route: 048
     Dates: start: 20130125, end: 20130409
  2. SYNTHROID (LEVOTHYROXINE SODIUM) [Concomitant]
  3. DIOVAN (VALSARTAN) [Concomitant]
  4. AMOXICILLIN (AMOXICILLIN) [Concomitant]

REACTIONS (1)
  - Sinusitis [None]
